FAERS Safety Report 5371360-2 (Version None)
Quarter: 2007Q2

REPORT INFORMATION
  Report Type: 
  Country: None (occurrence: None)
  Receive Date: 20070615
  Receipt Date: 20061019
  Transmission Date: 20071010
  Serious: Yes (Hospitalization, Other)
  Sender: FDA-Public Use
  Company Number: 200617807US

PATIENT
  Age: 32 Year
  Sex: Female

DRUGS (3)
  1. LANTUS [Suspect]
     Dosage: 75 U QD
     Dates: start: 20060711
  2. APIDRA [Suspect]
     Dates: start: 20060711
  3. VALSARTAN (DIOVANE) [Concomitant]

REACTIONS (3)
  - GLYCOSYLATED HAEMOGLOBIN INCREASED [None]
  - HYPOGLYCAEMIC COMA [None]
  - HYPOGLYCAEMIC SEIZURE [None]
